FAERS Safety Report 10597350 (Version 1)
Quarter: 2014Q4

REPORT INFORMATION
  Report Type: Spontaneous
  Country: MT (occurrence: MT)
  Receive Date: 20141121
  Receipt Date: 20141121
  Transmission Date: 20150529
  Serious: Yes (Other)
  Sender: FDA-Public Use
  Company Number: MT-PAR PHARMACEUTICAL, INC-2014SCPR009514

PATIENT

DRUGS (4)
  1. OMEPRAZOLE. [Concomitant]
     Active Substance: OMEPRAZOLE
     Indication: PRODUCT USED FOR UNKNOWN INDICATION
     Dosage: UNK UNK, UNKNOWN
     Route: 065
  2. ADRENALIN [Suspect]
     Active Substance: EPINEPHRINE
     Indication: GASTROINTESTINAL HAEMORRHAGE
     Dosage: UNK UNK, UNKNOWN
     Route: 065
  3. WARFARIN [Suspect]
     Active Substance: WARFARIN
     Dosage: UNK, UNKNOWN
     Route: 065
  4. WARFARIN [Suspect]
     Active Substance: WARFARIN
     Indication: ANTICOAGULANT THERAPY
     Dosage: UNK UNK, UNKNOWN
     Route: 065

REACTIONS (6)
  - Gastrointestinal haemorrhage [Recovering/Resolving]
  - Drug ineffective for unapproved indication [Unknown]
  - Campylobacter test positive [None]
  - Haemoglobin decreased [None]
  - Disease recurrence [Recovering/Resolving]
  - Large intestine polyp [None]
